FAERS Safety Report 9305658 (Version 2)
Quarter: 2013Q2

REPORT INFORMATION
  Report Type: Spontaneous
  Country: ES (occurrence: ES)
  Receive Date: 20130523
  Receipt Date: 20130624
  Transmission Date: 20140414
  Serious: Yes (Hospitalization)
  Sender: FDA-Public Use
  Company Number: ES-PFIZER INC-2013153719

PATIENT
  Age: 63 Year
  Sex: Male

DRUGS (6)
  1. CARDURAN NEO [Suspect]
     Indication: HYPERTENSION
     Dosage: 4 MG, ONCE DAILY
     Route: 048
     Dates: start: 20080904, end: 20100110
  2. IBUPROFEN [Interacting]
     Dosage: 600 MG, ONCE DAILY
     Route: 048
     Dates: end: 20100110
  3. ADALAT OROS [Interacting]
     Indication: HYPERTENSION
     Dosage: 60 MG, ONCE DAILY
     Route: 048
     Dates: start: 20090420, end: 20100110
  4. FORTZAAR [Interacting]
     Indication: HYPERTENSION
     Dosage: 100 MG, ONCE DAILY
     Route: 048
     Dates: start: 20080904, end: 20100110
  5. ACETAMINOPHEN [Concomitant]
     Dosage: 3 G PER DAY
     Route: 048
     Dates: start: 20100107, end: 20100110
  6. FLUTOX [Concomitant]
     Indication: COUGH
     Dosage: 141 MG PER DAY
     Route: 048
     Dates: start: 20100107, end: 20100110

REACTIONS (2)
  - Drug interaction [Recovered/Resolved]
  - Renal failure acute [Recovered/Resolved]
